FAERS Safety Report 6972702-4 (Version None)
Quarter: 2010Q3

REPORT INFORMATION
  Report Type: 
  Country: None (occurrence: None)
  Receive Date: 20100907
  Receipt Date: 20100825
  Transmission Date: 20110219
  Serious: Yes (Other)
  Sender: FDA-Public Use
  Company Number: 2010P1001094

PATIENT
  Age: 23 Year
  Sex: Male
  Weight: 74.8435 kg

DRUGS (3)
  1. SOLODYN [Suspect]
     Indication: ACNE
     Dosage: 115 MG; QD; PO
     Route: 048
     Dates: start: 20100402, end: 20100421
  2. MINOCYCLINE HCL [Suspect]
     Indication: ACNE
     Dosage: 100 MG; QD; PO, 100 MG; BID; PO
     Route: 048
     Dates: start: 20100303, end: 20100309
  3. MINOCYCLINE HCL [Suspect]
     Indication: ACNE
     Dosage: 100 MG; QD; PO, 100 MG; BID; PO
     Route: 048
     Dates: start: 20100309, end: 20100402

REACTIONS (4)
  - DEAFNESS UNILATERAL [None]
  - DRUG HYPERSENSITIVITY [None]
  - TINNITUS [None]
  - VIRAL INFECTION [None]
